FAERS Safety Report 21867661 (Version 3)
Quarter: 2024Q1

REPORT INFORMATION
  Report Type: Report from Study
  Country: EG (occurrence: EG)
  Receive Date: 20230116
  Receipt Date: 20240117
  Transmission Date: 20240410
  Serious: Yes (Other)
  Sender: FDA-Public Use
  Company Number: EG-002147023-NVSC2023EG008362

PATIENT
  Age: 55 Year
  Sex: Female

DRUGS (11)
  1. ENTRESTO [Suspect]
     Active Substance: SACUBITRIL\VALSARTAN
     Indication: Left ventricular failure
     Dosage: 1 DOSAGE FORM, BID (50 MG)
     Route: 048
     Dates: start: 202106, end: 20230109
  2. ENTRESTO [Suspect]
     Active Substance: SACUBITRIL\VALSARTAN
     Dosage: 1 DOSAGE FORM, BID (100 MG)
     Route: 048
     Dates: start: 20230109
  3. ENTRESTO [Suspect]
     Active Substance: SACUBITRIL\VALSARTAN
     Dosage: 0.5 DOSAGE FORM, BID
     Route: 048
  4. DAPAGLIFLOZIN [Concomitant]
     Active Substance: DAPAGLIFLOZIN
     Indication: Diabetes mellitus
     Dosage: UNK, QD (AFTER BREAKFAST)
     Route: 065
     Dates: start: 2020
  5. TORSEMIDE [Concomitant]
     Active Substance: TORSEMIDE
     Indication: Hypertension
     Dosage: UNK, QD (BEFORE EATING)
     Route: 065
     Dates: start: 2020
  6. METOPROLOL SUCCINATE [Concomitant]
     Active Substance: METOPROLOL SUCCINATE
     Indication: Tachycardia
     Dosage: UNK, QD (AT NIGHT)
     Route: 065
     Dates: start: 2020
  7. IVABRADINE [Concomitant]
     Active Substance: IVABRADINE
     Indication: Cardiac disorder
     Dosage: UNK, BID
     Route: 065
     Dates: start: 2020
  8. CARVEDILOL [Concomitant]
     Active Substance: CARVEDILOL
     Indication: Heart rate irregular
     Dosage: 1 DOSAGE FORM (6.25 MG), BID
     Route: 065
  9. FUROSEMIDE\SPIRONOLACTONE [Concomitant]
     Active Substance: FUROSEMIDE\SPIRONOLACTONE
     Indication: Oedema
     Dosage: 0.5 DOSAGE FORM (50 MG), QD (ONCE IN MORNING)
     Route: 065
     Dates: start: 202306
  10. CLOPEX [Concomitant]
     Indication: Anticoagulant therapy
     Dosage: 1 DOSAGE FORM (75 MG), QD (ONE TABLET DAILY AT EVENING)
     Route: 065
  11. CAL-MAG [Concomitant]
     Indication: Product used for unknown indication
     Dosage: 1 DOSAGE FORM (1 TAB AFTER LUNCH)
     Route: 065

REACTIONS (6)
  - COVID-19 [Recovered/Resolved]
  - Hypoxia [Recovered/Resolved]
  - Ejection fraction decreased [Recovered/Resolved]
  - Chest pain [Unknown]
  - Fatigue [Unknown]
  - Wrong technique in product usage process [Unknown]

NARRATIVE: CASE EVENT DATE: 20221101
